FAERS Safety Report 6298965-9 (Version None)
Quarter: 2009Q3

REPORT INFORMATION
  Report Type: 
  Country: None (occurrence: None)
  Receive Date: 20090806
  Receipt Date: 20090729
  Transmission Date: 20100115
  Serious: Yes (Other)
  Sender: FDA-Public Use
  Company Number: CA-BAYER-200928407NA

PATIENT
  Age: 43 Year
  Sex: Female

DRUGS (1)
  1. YASMIN [Suspect]
     Indication: CONTRACEPTION
     Route: 048
     Dates: start: 20090401, end: 20090630

REACTIONS (10)
  - ANAPHYLACTIC SHOCK [None]
  - BURNING SENSATION [None]
  - DYSPNOEA [None]
  - EAR DISCOMFORT [None]
  - HOT FLUSH [None]
  - LOSS OF CONSCIOUSNESS [None]
  - PHARYNGEAL OEDEMA [None]
  - RESPIRATORY ARREST [None]
  - SENSORY DISTURBANCE [None]
  - THROAT TIGHTNESS [None]
